FAERS Safety Report 4279033-4 (Version None)
Quarter: 2004Q1

REPORT INFORMATION
  Report Type: 
  Country: None (occurrence: None)
  Receive Date: 20040122
  Receipt Date: 20040109
  Transmission Date: 20041129
  Serious: Yes (Hospitalization)
  Sender: FDA-Public Use
  Company Number: 2003126072

PATIENT
  Age: 36 Year
  Sex: Female

DRUGS (7)
  1. GEODON [Suspect]
     Indication: SCHIZOAFFECTIVE DISORDER
     Dosage: 120 MG (BID)
     Dates: start: 20031001
  2. GEODON [Suspect]
     Indication: SCHIZOPHRENIA
     Dosage: 120 MG (BID)
     Dates: start: 20031001
  3. HYDROCORTISONE [Suspect]
     Indication: PRURITUS
  4. DIPHENHYDRAMINE HCL [Suspect]
     Indication: PRURITUS
  5. ALL OTHER THERAPEUTIC PRODUCTS [Concomitant]
  6. FLUPHENAZINE HYDROCHLORIDE (FLUPHENAZINE HYDROCHLORIDE) [Concomitant]
  7. VALPROATE SODIUM [Concomitant]

REACTIONS (1)
  - PRURITUS [None]
